FAERS Safety Report 10260252 (Version 1)
Quarter: 2014Q2

REPORT INFORMATION
  Report Type: Spontaneous
  Country: US (occurrence: US)
  Receive Date: 20140625
  Receipt Date: 20140625
  Transmission Date: 20141212
  Serious: No
  Sender: FDA-Public Use
  Company Number: US-SA-2014SA044795

PATIENT
  Age: 59 Year
  Sex: Male
  Weight: 109 kg

DRUGS (11)
  1. AUBAGIO [Suspect]
     Indication: MULTIPLE SCLEROSIS
     Route: 065
     Dates: start: 201303
  2. AUBAGIO [Suspect]
     Indication: MULTIPLE SCLEROSIS
     Route: 065
     Dates: start: 201307, end: 20130711
  3. LISINOPRIL [Concomitant]
  4. SPIRONOLACTONE [Concomitant]
  5. LASIX [Concomitant]
  6. PLAVIX [Concomitant]
  7. ALLOPURINOL [Concomitant]
  8. ATIVAN [Concomitant]
  9. CARVEDILOL [Concomitant]
  10. ISOSORBIDE DINITRATE [Concomitant]
  11. TECFIDERA [Concomitant]

REACTIONS (1)
  - Blood pressure increased [Recovered/Resolved]
